FAERS Safety Report 9797108 (Version 1)
Quarter: 2014Q1

REPORT INFORMATION
  Report Type: Spontaneous
  Country: US (occurrence: US)
  Receive Date: 20140106
  Receipt Date: 20140106
  Transmission Date: 20141002
  Serious: Yes (Other)
  Sender: FDA-Public Use
  Company Number: US-ROCHE-1328280

PATIENT
  Age: 55 Year
  Sex: Female

DRUGS (2)
  1. ZALCITABINE [Suspect]
     Indication: PROPHYLAXIS AGAINST HIV INFECTION
     Route: 065
  2. ZIDOVUDINE [Suspect]
     Indication: PROPHYLAXIS AGAINST HIV INFECTION
     Route: 065

REACTIONS (6)
  - Hepatotoxicity [Recovered/Resolved]
  - Pyrexia [Unknown]
  - Nausea [Unknown]
  - Headache [Unknown]
  - Rash [Recovered/Resolved]
  - Lymphopenia [Recovered/Resolved]
